FAERS Safety Report 18739110 (Version 1)
Quarter: 2021Q1

REPORT INFORMATION
  Report Type: Spontaneous
  Country: US (occurrence: US)
  Receive Date: 20210114
  Receipt Date: 20210114
  Transmission Date: 20210419
  Serious: No
  Sender: FDA-Public Use
  Company Number: US-ALLERGAN-2033684US

PATIENT
  Sex: Female

DRUGS (5)
  1. MEXILETINE [Concomitant]
     Active Substance: MEXILETINE
     Indication: HEART RATE IRREGULAR
     Dosage: UNK
     Route: 048
  2. POTASSIUM CHLORIDE. [Concomitant]
     Active Substance: POTASSIUM CHLORIDE
     Indication: HYPOKALAEMIA
     Dosage: UNK
     Route: 048
  3. BOTOX [Concomitant]
     Active Substance: ONABOTULINUMTOXINA
     Indication: MIGRAINE
  4. UBRELVY [Suspect]
     Active Substance: UBROGEPANT
     Indication: MIGRAINE
     Dosage: 100 MG, SINGLE
     Route: 048
     Dates: start: 20200923, end: 20200923
  5. AMILORIDE [Concomitant]
     Active Substance: AMILORIDE
     Indication: HYPOKALAEMIA

REACTIONS (1)
  - Drug ineffective [Unknown]
